FAERS Safety Report 9671673 (Version 1)
Quarter: 2013Q4

REPORT INFORMATION
  Report Type: Spontaneous
  Country: US (occurrence: US)
  Receive Date: 20131106
  Receipt Date: 20131106
  Transmission Date: 20140711
  Serious: No
  Sender: FDA-Public Use
  Company Number: US-PFIZER INC-2013313364

PATIENT
  Age: 52 Year
  Sex: Female

DRUGS (8)
  1. SPIRONOLACTONE [Suspect]
     Indication: ACNE
     Dosage: 25 MG, UNK
     Route: 048
     Dates: start: 20131011, end: 20131013
  2. CLINDAMYCIN PHOSPHATE [Suspect]
     Dosage: UNK
     Route: 061
     Dates: start: 20131011, end: 20131012
  3. TRIAMCINOLONE ACETONIDE [Suspect]
     Dosage: UNK
  4. ORACEA [Suspect]
     Indication: ROSACEA
     Dosage: 40 MG, DAILY
     Route: 048
     Dates: start: 20131016, end: 20131021
  5. CETAPHIL [Concomitant]
     Dosage: UNK
     Route: 061
  6. LEVOTHYROXINE SODIUM [Concomitant]
     Indication: HYPOTHYROIDISM
     Dosage: 0.05 MG, DAILY
     Route: 048
  7. ACIDOPHILUS [Concomitant]
     Indication: SUPPLEMENTATION THERAPY
     Dosage: UNK
     Route: 048
  8. CALCIUM [Concomitant]
     Indication: SUPPLEMENTATION THERAPY
     Dosage: UNK
     Route: 048

REACTIONS (23)
  - Skin disorder [Unknown]
  - Skin swelling [Unknown]
  - Erythema [Unknown]
  - Skin burning sensation [Unknown]
  - Pruritus [Unknown]
  - Dermatitis [Unknown]
  - Pain of skin [Unknown]
  - Rosacea [Unknown]
  - Hypersensitivity [Unknown]
  - Condition aggravated [Unknown]
  - Eye pain [Recovered/Resolved]
  - Lacrimation increased [Unknown]
  - Eye irritation [Unknown]
  - Vision blurred [Unknown]
  - Throat irritation [Recovered/Resolved]
  - Nasopharyngitis [Unknown]
  - Sneezing [Unknown]
  - Fatigue [Unknown]
  - Oropharyngeal pain [Unknown]
  - Aphthous stomatitis [Recovered/Resolved]
  - Dermatitis [Unknown]
  - Ocular rosacea [Unknown]
  - Eye disorder [Unknown]
